FAERS Safety Report 10800997 (Version 2)
Quarter: 2015Q1

REPORT INFORMATION
  Report Type: Spontaneous
  Country: US (occurrence: US)
  Receive Date: 20150216
  Receipt Date: 20150216
  Transmission Date: 20150721
  Serious: No
  Sender: FDA-Public Use
  Company Number: US-ALLERGAN-1421383US

PATIENT
  Sex: Female

DRUGS (10)
  1. RESTASIS [Suspect]
     Active Substance: CYCLOSPORINE
     Indication: DRY EYE
     Dosage: 2 GTT, BID
     Route: 047
     Dates: start: 2014
  2. CLARITIN [Concomitant]
     Active Substance: LORATADINE
     Indication: RESTLESS LEGS SYNDROME
     Dosage: 0.5 MG, QHS
     Route: 048
  3. MONTELUKAST [Concomitant]
     Active Substance: MONTELUKAST SODIUM
     Indication: HYPERSENSITIVITY
     Dosage: 10 MG, QHS
     Route: 048
  4. MAGNESIUM [Concomitant]
     Active Substance: MAGNESIUM
     Dosage: UNK
  5. AZELASTINE [Concomitant]
     Active Substance: AZELASTINE
     Indication: HYPERSENSITIVITY
     Dosage: UNK
     Dates: start: 201409
  6. SYSTANE ULTRA [Concomitant]
     Active Substance: POLYETHYLENE GLYCOL 400\PROPYLENE GLYCOL
     Indication: DRY EYE
     Dosage: UNK UNK, TID
     Route: 047
  7. FLUTICASONE [Concomitant]
     Active Substance: FLUTICASONE\FLUTICASONE PROPIONATE
     Indication: HYPERSENSITIVITY
  8. MELATONIN [Concomitant]
     Active Substance: MELATONIN
     Dosage: UNK UNK, QHS
     Route: 048
  9. IPRATROPIUM [Concomitant]
     Active Substance: IPRATROPIUM
     Indication: HYPERSENSITIVITY
     Dosage: UNK
     Route: 045
  10. OMEPRAZOLE. [Concomitant]
     Active Substance: OMEPRAZOLE
     Indication: GASTROOESOPHAGEAL REFLUX DISEASE
     Dosage: 40 MG, QD
     Route: 048

REACTIONS (4)
  - Foreign body sensation in eyes [Not Recovered/Not Resolved]
  - Eye irritation [Not Recovered/Not Resolved]
  - Lacrimal structural disorder [Unknown]
  - Therapeutic response decreased [Unknown]
